FAERS Safety Report 13276390 (Version 1)
Quarter: 2017Q1

REPORT INFORMATION
  Report Type: Report from Study
  Country: SA (occurrence: SA)
  Receive Date: 20170228
  Receipt Date: 20170228
  Transmission Date: 20170428
  Serious: Yes (Death, Other)
  Sender: FDA-Public Use
  Company Number: SA-SUN PHARMACEUTICAL INDUSTRIES LTD-2015R1-106987

PATIENT
  Age: 62 Year
  Sex: Female

DRUGS (4)
  1. CARBOPLATIN. [Suspect]
     Active Substance: CARBOPLATIN
     Indication: CLEAR CELL ENDOMETRIAL CARCINOMA
     Dosage: UNK
     Route: 065
  2. CISPLATIN. [Suspect]
     Active Substance: CISPLATIN
     Indication: CLEAR CELL ENDOMETRIAL CARCINOMA
     Dosage: 50 MG/M2
     Route: 065
  3. DOXORUBICIN [Suspect]
     Active Substance: DOXORUBICIN
     Indication: CLEAR CELL ENDOMETRIAL CARCINOMA
     Dosage: 15 MG/M2
     Route: 065
  4. PACLITAXEL. [Suspect]
     Active Substance: PACLITAXEL
     Indication: CLEAR CELL ENDOMETRIAL CARCINOMA
     Dosage: UNK
     Route: 065

REACTIONS (5)
  - Hydronephrosis [Unknown]
  - Pleural effusion [Unknown]
  - Intestinal obstruction [Unknown]
  - Malignant neoplasm progression [Fatal]
  - Anastomotic leak [Unknown]
